FAERS Safety Report 14304962 (Version 1)
Quarter: 2017Q4

REPORT INFORMATION
  Report Type: Report from Study
  Country: JP (occurrence: JP)
  Receive Date: 20171219
  Receipt Date: 20171219
  Transmission Date: 20180321
  Serious: Yes (Hospitalization)
  Sender: FDA-Public Use
  Company Number: JP-OTSUKA-004261

PATIENT
  Age: 52 Year
  Sex: Male
  Weight: 55 kg

DRUGS (19)
  1. ARIPIPRAZOLE. [Suspect]
     Active Substance: ARIPIPRAZOLE
     Dosage: 12 MG, QD
     Route: 048
     Dates: start: 20080424, end: 20080521
  2. ARIPIPRAZOLE. [Suspect]
     Active Substance: ARIPIPRAZOLE
     Dosage: 12 MG, QD
     Route: 048
     Dates: start: 20080808, end: 20080824
  3. RISPERDAL [Concomitant]
     Active Substance: RISPERIDONE
     Indication: SCHIZOPHRENIA
     Dosage: 6 ML, DAILY DOSE
     Route: 048
     Dates: start: 20080319, end: 20080413
  4. ARIPIPRAZOLE. [Suspect]
     Active Substance: ARIPIPRAZOLE
     Indication: SCHIZOPHRENIA
     Dosage: 6 MG, QD
     Route: 048
     Dates: start: 20080414, end: 20080423
  5. ARIPIPRAZOLE. [Suspect]
     Active Substance: ARIPIPRAZOLE
     Dosage: 6 MG, TID
     Route: 048
     Dates: start: 20080522, end: 20080807
  6. MAGNESIUM OXIDE. [Concomitant]
     Active Substance: MAGNESIUM OXIDE
     Dosage: 1.5 G, DAILY DOSE
     Route: 048
     Dates: start: 20080327, end: 20080813
  7. TASMOLIN [Concomitant]
     Active Substance: BIPERIDEN
     Dosage: 4 MG, QD
     Route: 048
     Dates: start: 20080404, end: 20080404
  8. RISPERDAL [Concomitant]
     Active Substance: RISPERIDONE
     Dosage: 4 ML, DAILY DOSE
     Route: 048
     Dates: start: 20080414, end: 20080507
  9. RISPERDAL [Concomitant]
     Active Substance: RISPERIDONE
     Dosage: 2 ML, DAILY DOSE
     Route: 048
     Dates: start: 20080508, end: 20080521
  10. HIBERNA [Concomitant]
     Active Substance: PROMETHAZINE HYDROCHLORIDE
     Dosage: 50 MG, QD
     Route: 048
     Dates: start: 20080424, end: 20080507
  11. NELUROLEN [Concomitant]
     Active Substance: NITRAZEPAM
     Dosage: 10 MG, QD
     Route: 048
     Dates: start: 20080319
  12. SENNOSIDE [Concomitant]
     Active Substance: SENNOSIDES
     Dosage: 24 MG, QD
     Route: 048
     Dates: start: 20080327
  13. TASMOLIN [Concomitant]
     Active Substance: BIPERIDEN
     Dosage: 2 MG, QD
     Route: 048
     Dates: start: 20080331, end: 20080403
  14. HIBERNA [Concomitant]
     Active Substance: PROMETHAZINE HYDROCHLORIDE
     Dosage: 100 MG, QD
     Route: 048
     Dates: start: 20080410, end: 20080423
  15. HIBERNA [Concomitant]
     Active Substance: PROMETHAZINE HYDROCHLORIDE
     Dosage: 25 MG, QD
     Route: 048
     Dates: start: 20080508, end: 20080521
  16. RIVOTRIL [Concomitant]
     Active Substance: CLONAZEPAM
     Dosage: 3 MG, QD
     Route: 048
     Dates: start: 20080807
  17. SENNA [Concomitant]
     Active Substance: SENNA LEAF\SENNOSIDES\SENNOSIDES A AND B
     Dosage: UNK
     Dates: start: 20080327
  18. CLONAZEPAM. [Concomitant]
     Active Substance: CLONAZEPAM
     Dosage: UNK
     Dates: start: 20080807
  19. TASMOLIN [Concomitant]
     Active Substance: BIPERIDEN
     Dosage: 6 MG, QD
     Route: 048
     Dates: start: 20080405

REACTIONS (1)
  - Schizophrenia [Recovering/Resolving]

NARRATIVE: CASE EVENT DATE: 200807
